FAERS Safety Report 8451489-2 (Version None)
Quarter: 2012Q2

REPORT INFORMATION
  Report Type: 
  Country: None (occurrence: None)
  Receive Date: 20120620
  Receipt Date: 20120305
  Transmission Date: 20120825
  Serious: No
  Sender: FDA-Public Use
  Company Number: US-VERTEX PHARMACEUTICALS INC.-AE-2012-003137

PATIENT
  Sex: Male
  Weight: 108.96 kg

DRUGS (4)
  1. PEGASYS [Concomitant]
     Indication: HEPATITIS C
     Dates: start: 20120117
  2. NARCO [Concomitant]
     Indication: PAIN
     Route: 048
  3. INCIVEK [Suspect]
     Indication: HEPATITIS C
     Route: 048
     Dates: start: 20120117
  4. RIBAVIRIN [Concomitant]
     Indication: HEPATITIS C
     Route: 048
     Dates: start: 20120117

REACTIONS (2)
  - FATIGUE [None]
  - RASH GENERALISED [None]
